FAERS Safety Report 6085457-5 (Version None)
Quarter: 2009Q1

REPORT INFORMATION
  Report Type: 
  Country: None (occurrence: None)
  Receive Date: 20090220
  Receipt Date: 20090209
  Transmission Date: 20090719
  Serious: Yes (Hospitalization)
  Sender: FDA-Public Use
  Company Number: FR-JNJFOC-20090201979

PATIENT
  Sex: Female

DRUGS (10)
  1. DAKTARIN [Suspect]
     Route: 048
  2. DAKTARIN [Suspect]
     Indication: DRUG USE FOR UNKNOWN INDICATION
     Route: 048
  3. AMIODARONE [Interacting]
     Indication: DRUG USE FOR UNKNOWN INDICATION
     Route: 048
  4. MINISINTROM [Interacting]
     Route: 048
  5. MINISINTROM [Interacting]
     Indication: DRUG USE FOR UNKNOWN INDICATION
     Route: 048
  6. HALDOL [Concomitant]
     Indication: ANXIETY
     Route: 048
  7. DURAGESIC-100 [Concomitant]
     Indication: PAIN
     Route: 062
  8. ACTISKENAN [Concomitant]
     Indication: PAIN
     Route: 048
  9. ARIMIDEX [Concomitant]
     Indication: BREAST CANCER
     Route: 048
  10. DAFALGAN [Concomitant]
     Route: 048

REACTIONS (3)
  - DRUG INTERACTION [None]
  - GINGIVAL BLEEDING [None]
  - INTERNATIONAL NORMALISED RATIO INCREASED [None]
